FAERS Safety Report 26092034 (Version 2)
Quarter: 2025Q4

REPORT INFORMATION
  Report Type: Spontaneous
  Country: EU (occurrence: EU)
  Receive Date: 20251126
  Receipt Date: 20251218
  Transmission Date: 20260118
  Serious: Yes (Hospitalization)
  Sender: TEVA
  Company Number: EU-TEVA-VS-3395645

PATIENT
  Age: 20 Year
  Sex: Female

DRUGS (2)
  1. IBUPROFEN [Suspect]
     Active Substance: IBUPROFEN
     Indication: Tooth abscess
     Route: 065
  2. AMOXICILLIN AND CLAVULANATE POTASSIUM [Concomitant]
     Active Substance: AMOXICILLIN\CLAVULANATE POTASSIUM
     Indication: Tooth abscess

REACTIONS (8)
  - Drug hypersensitivity [Recovering/Resolving]
  - Cyanosis [Recovering/Resolving]
  - Stridor [Recovering/Resolving]
  - Abscess [Recovering/Resolving]
  - Face oedema [Recovering/Resolving]
  - Laryngeal oedema [Recovering/Resolving]
  - Tongue oedema [Recovering/Resolving]
  - Dysphonia [Recovering/Resolving]
